FAERS Safety Report 6127431-6 (Version None)
Quarter: 2009Q1

REPORT INFORMATION
  Report Type: 
  Country: None (occurrence: None)
  Receive Date: 20090323
  Receipt Date: 20090313
  Transmission Date: 20090719
  Serious: Yes (Death, Life-Threatening, Hospitalization)
  Sender: FDA-Public Use
  Company Number: GR-TEVA-187796ISR

PATIENT
  Sex: Male

DRUGS (6)
  1. PACLITAXEL [Suspect]
     Indication: NON-SMALL CELL LUNG CANCER
     Dosage: 370 MG CYCLIC ON DAY 1 OF 21-DAY CYCLE
     Dates: start: 20070226
  2. CARBOPLATIN [Suspect]
     Indication: NON-SMALL CELL LUNG CANCER
     Dosage: 630 MG CYCLIC ON DAY 1 OF 21-DAY CYCLE,
     Route: 042
     Dates: start: 20070216
  3. PF-03512676 (PF-03512676) [Suspect]
     Dosage: 15 MG (15 MG) CYCLIC ON DAY 8 AND 15 OF 21-DAY CYCLE,
     Route: 058
  4. HALOPERIDOL [Concomitant]
  5. ORPHENADRINE HYDROCHLORIDE [Concomitant]
  6. CHLORPROMAZINE HYDROCHLORIDE [Concomitant]

REACTIONS (4)
  - CARDIO-RESPIRATORY ARREST [None]
  - HYPERSENSITIVITY [None]
  - PULMONARY EMBOLISM [None]
  - SEPSIS [None]
